FAERS Safety Report 18713678 (Version 4)
Quarter: 2024Q2

REPORT INFORMATION
  Report Type: Spontaneous
  Country: DE (occurrence: DE)
  Receive Date: 20210107
  Receipt Date: 20240408
  Transmission Date: 20240715
  Serious: Yes (Life-Threatening, Hospitalization, Other)
  Sender: FDA-Public Use
  Company Number: DE-BMKK-BMS-2020-111191AA

PATIENT
  Age: 53 Year
  Sex: Female

DRUGS (15)
  1. TRIAMCINOLONE ACETONIDE [Suspect]
     Active Substance: TRIAMCINOLONE ACETONIDE
     Indication: Infiltration anaesthesia
     Dosage: 40 MILLIGRAM, 15-JAN AND 17-JAN (YEAR NOT SPECIFIED) INJECTION
     Route: 008
  2. TRIAMCINOLONE ACETONIDE [Suspect]
     Active Substance: TRIAMCINOLONE ACETONIDE
     Dosage: 21-JAN (YEAR NOT SPECIFIED), INJECTION
     Route: 037
  3. BUPIVACAINE [Suspect]
     Active Substance: BUPIVACAINE
     Indication: Infiltration anaesthesia
     Dosage: ON JANUARY 14 AND 18
     Route: 048
  4. BUPIVACAINE [Suspect]
     Active Substance: BUPIVACAINE
     Dosage: ON JANUARY 15 AND 17
     Route: 008
  5. BUPIVACAINE [Suspect]
     Active Substance: BUPIVACAINE
     Dosage: ON JAN 21 (YEAR UNSPECIFIED)
     Route: 037
  6. PRILOCAINE [Suspect]
     Active Substance: PRILOCAINE
     Indication: Infiltration anaesthesia
     Dosage: ON JANUARY 15 AND 17 (YEAR UNSPECIFIED)
     Route: 008
  7. DEXAMETHASONE [Suspect]
     Active Substance: DEXAMETHASONE
     Indication: Infiltration anaesthesia
     Dosage: 4 MILLIGRAM, ON JANUARY 14 AND 18, ROUTE: OTHER?15-JAN (YEAR NOT REPORTED) AND 17
  8. BISOPROLOL [Concomitant]
     Active Substance: BISOPROLOL\BISOPROLOL FUMARATE
     Indication: Product used for unknown indication
     Dosage: 1X5MG
  9. LEVOTHYROXINE SODIUM [Concomitant]
     Active Substance: LEVOTHYROXINE SODIUM
     Indication: Product used for unknown indication
     Dosage: 1X125MCG
  10. LEVOTHYROXINE SODIUM [Concomitant]
     Active Substance: LEVOTHYROXINE SODIUM
     Dosage: 1X125MCG
  11. LEVOTHYROXINE SODIUM [Concomitant]
     Active Substance: LEVOTHYROXINE SODIUM
     Dosage: DOSAGE TEXT: 12 MICROGRAM, QD
  12. AMLODIPINE [Concomitant]
     Active Substance: AMLODIPINE BESYLATE
     Indication: Product used for unknown indication
     Dosage: 1X5MG
  13. TORSEMIDE [Concomitant]
     Active Substance: TORSEMIDE
     Indication: Product used for unknown indication
     Dosage: 1X5MG
  14. VALPROATE [Concomitant]
     Active Substance: VALPROIC ACID
     Indication: Product used for unknown indication
     Dosage: 2X300MG
  15. CANDESARTAN [Concomitant]
     Active Substance: CANDESARTAN
     Indication: Product used for unknown indication
     Dosage: 1X16MG

REACTIONS (1)
  - Necrotising fasciitis [Recovering/Resolving]

NARRATIVE: CASE EVENT DATE: 20191004
